FAERS Safety Report 24937508 (Version 2)
Quarter: 2025Q1

REPORT INFORMATION
  Report Type: Spontaneous
  Country: JP (occurrence: JP)
  Receive Date: 20250206
  Receipt Date: 20250304
  Transmission Date: 20250409
  Serious: Yes (Other)
  Sender: SANOFI AVENTIS
  Company Number: JP-SA-2025SA036780

PATIENT
  Age: 25 Year
  Sex: Male

DRUGS (1)
  1. DUPILUMAB [Suspect]
     Active Substance: DUPILUMAB
     Indication: Dermatitis atopic
     Dosage: UNK UNK, BIW
     Route: 065

REACTIONS (11)
  - Psoriatic arthropathy [Unknown]
  - Tendon pain [Recovering/Resolving]
  - Arthralgia [Recovering/Resolving]
  - Peripheral swelling [Recovering/Resolving]
  - Dermatitis [Recovering/Resolving]
  - Acanthosis [Recovering/Resolving]
  - Parakeratosis [Recovering/Resolving]
  - Lymphocytic infiltration [Recovering/Resolving]
  - Skin lesion [Recovering/Resolving]
  - Erythema [Recovering/Resolving]
  - Skin plaque [Recovering/Resolving]
